FAERS Safety Report 6826043-6 (Version None)
Quarter: 2010Q3

REPORT INFORMATION
  Report Type: 
  Country: None (occurrence: None)
  Receive Date: 20100709
  Receipt Date: 20100630
  Transmission Date: 20110219
  Serious: Yes (Hospitalization)
  Sender: FDA-Public Use
  Company Number: BR-ASTRAZENECA-2010SE30803

PATIENT
  Age: 77 Year
  Sex: Female

DRUGS (2)
  1. SPLENDIL [Suspect]
     Indication: HYPERTENSION
     Route: 048
  2. UNKNOWN [Concomitant]
     Indication: BREAST CANCER
     Dosage: OD
     Route: 048
     Dates: start: 20091001

REACTIONS (2)
  - BREAST CANCER [None]
  - LABYRINTHITIS [None]
